FAERS Safety Report 16829825 (Version 1)
Quarter: 2019Q3

REPORT INFORMATION
  Report Type: Spontaneous
  Country: CA (occurrence: CA)
  Receive Date: 20190919
  Receipt Date: 20190919
  Transmission Date: 20191005
  Serious: Yes (Hospitalization, Other)
  Sender: FDA-Public Use
  Company Number: CA-SHIRE-CA201930402

PATIENT

DRUGS (2)
  1. ASA [Concomitant]
     Active Substance: ASPIRIN
     Indication: PRODUCT USED FOR UNKNOWN INDICATION
     Dosage: UNK
  2. GAMMAGARD LIQUID [Suspect]
     Active Substance: HUMAN IMMUNOGLOBULIN G
     Indication: KAWASAKI^S DISEASE
     Dosage: 2000 MILLIGRAM/KILOGRAM, 1X/DAY:QD
     Route: 042

REACTIONS (7)
  - Pyrexia [Recovered/Resolved]
  - Haemolytic transfusion reaction [Recovered/Resolved]
  - Haemoglobin decreased [Recovered/Resolved]
  - Tachycardia [Recovered/Resolved]
  - Red blood cell spherocytes present [Recovered/Resolved]
  - Headache [Recovered/Resolved]
  - Nausea [Recovered/Resolved]
